FAERS Safety Report 5011811-6 (Version None)
Quarter: 2006Q2

REPORT INFORMATION
  Report Type: 
  Country: None (occurrence: None)
  Receive Date: 20060524
  Receipt Date: 20060524
  Transmission Date: 20061013
  Serious: No
  Sender: FDA-Public Use
  Company Number: None

PATIENT
  Age: 47 Year
  Sex: Male

DRUGS (4)
  1. AMPICILLIN [Suspect]
     Indication: ENDOCARDITIS
     Dosage: 12-16G/DAY  IV
     Route: 042
  2. GENTAMICIN [Suspect]
     Indication: ENDOCARDITIS
     Dosage: 250-300MG/DAY IV
     Route: 042
  3. VANCOMYCIN [Concomitant]
  4. POTASSIUM CHLORIDE [Concomitant]

REACTIONS (3)
  - DIALYSIS [None]
  - EOSINOPHILS URINE PRESENT [None]
  - RENAL FAILURE [None]
